FAERS Safety Report 5803596-8 (Version None)
Quarter: 2008Q3

REPORT INFORMATION
  Report Type: 
  Country: None (occurrence: None)
  Receive Date: 20080703
  Receipt Date: 20080617
  Transmission Date: 20090109
  Serious: Yes (Death, Hospitalization, Disabling)
  Sender: FDA-Public Use
  Company Number: 002#8#2008-00514

PATIENT
  Age: 78 Year
  Sex: Male

DRUGS (6)
  1. CARBIDOPA + LEVODOPA [Suspect]
     Indication: PARKINSON'S DISEASE
     Dosage: 8, IN 1 D,
  2. LEVODOPA [Suspect]
     Indication: PARKINSON'S DISEASE
  3. SINEMET CR [Concomitant]
  4. JUNEX [Concomitant]
  5. AMANTADINE HCL [Concomitant]
  6. DOPAMINE AGENTS [Concomitant]

REACTIONS (25)
  - AGITATION [None]
  - ANXIETY [None]
  - AREFLEXIA [None]
  - BEDRIDDEN [None]
  - BLADDER SPHINCTER ATONY [None]
  - CARDIAC ARREST [None]
  - DELUSION [None]
  - DRUG DEPENDENCE [None]
  - DRUG WITHDRAWAL SYNDROME [None]
  - DYSKINESIA [None]
  - FEAR [None]
  - GUILLAIN-BARRE SYNDROME [None]
  - HALLUCINATION, VISUAL [None]
  - HYPERHIDROSIS [None]
  - HYPERVENTILATION [None]
  - INCONTINENCE [None]
  - LACRIMATION INCREASED [None]
  - ON AND OFF PHENOMENON [None]
  - PALPITATIONS [None]
  - PARALYSIS [None]
  - QUADRIPLEGIA [None]
  - RHINORRHOEA [None]
  - SUDDEN DEATH [None]
  - TREATMENT FAILURE [None]
  - VIRAL INFECTION [None]
